FAERS Safety Report 23681727 (Version 1)
Quarter: 2024Q1

REPORT INFORMATION
  Report Type: Other
  Country: GB (occurrence: None)
  Receive Date: 20240328
  Receipt Date: 20240328
  Transmission Date: 20240410
  Serious: Yes (Hospitalization)
  Sender: FDA-Public Use
  Company Number: GB-ROCHE-3527724

PATIENT
  Sex: Female

DRUGS (2)
  1. TOCILIZUMAB [Suspect]
     Active Substance: TOCILIZUMAB
     Indication: Rheumatoid arthritis
     Route: 058
     Dates: start: 20240314
  2. LORATADINE [Concomitant]
     Active Substance: LORATADINE

REACTIONS (6)
  - Swelling face [Unknown]
  - Hypoaesthesia [Unknown]
  - Nasal congestion [Unknown]
  - Facial paralysis [Unknown]
  - Eye swelling [Unknown]
  - Erythema [Unknown]
